FAERS Safety Report 8163891-7 (Version None)
Quarter: 2012Q1

REPORT INFORMATION
  Report Type: 
  Country: None (occurrence: None)
  Receive Date: 20120224
  Receipt Date: 20120213
  Transmission Date: 20120608
  Serious: Yes (Hospitalization)
  Sender: FDA-Public Use
  Company Number: GR-ELI_LILLY_AND_COMPANY-GR201202004172

PATIENT
  Age: 46 Year
  Sex: Male
  Weight: 84 kg

DRUGS (12)
  1. CYMBALTA [Concomitant]
     Indication: DEPRESSION
     Dosage: UNK
  2. DURAGESIC-100 [Concomitant]
     Indication: PAIN
     Dosage: UNK
     Dates: start: 20110221
  3. GEMCITABINE HYDROCHLORIDE [Suspect]
     Indication: PANCREATIC CARCINOMA METASTATIC
     Dosage: 1600 MG, DAY ONE AND 14 EVERY 4 WEEKS
     Route: 042
     Dates: start: 20110207
  4. SALOSPIR [Concomitant]
     Dosage: UNK
  5. ZINACEF [Concomitant]
     Indication: PYREXIA
     Dosage: UNK
     Dates: start: 20110221, end: 20110225
  6. TEMSIROLIMUS [Suspect]
     Indication: PANCREATIC CARCINOMA METASTATIC
     Dosage: 20 MG, WEEKLY (1/W)
     Route: 042
     Dates: start: 20110207, end: 20110214
  7. LEVOTHYROXINE SODIUM [Concomitant]
     Indication: HYPOTHYROIDISM
     Dosage: UNK
  8. MEROPENEM [Concomitant]
     Indication: PYREXIA
     Dosage: UNK
     Dates: start: 20111125
  9. MORPHINE [Concomitant]
     Dosage: UNK
     Dates: start: 20110221, end: 20110311
  10. FLAGYL [Concomitant]
     Indication: PYREXIA
     Dosage: UNK
     Dates: start: 20110221, end: 20110302
  11. NEXIUM [Concomitant]
     Dosage: UNK
     Dates: start: 20110207
  12. LINEZOLID [Concomitant]
     Dosage: UNK
     Dates: start: 20110225, end: 20110309

REACTIONS (2)
  - INFECTION [None]
  - BILE DUCT OBSTRUCTION [None]
